FAERS Safety Report 18407383 (Version 1)
Quarter: 2020Q4

REPORT INFORMATION
  Report Type: Spontaneous
  Country: HU (occurrence: HU)
  Receive Date: 20201020
  Receipt Date: 20201020
  Transmission Date: 20210114
  Serious: Yes (Death, Hospitalization, Other)
  Sender: FDA-Public Use
  Company Number: HU-MYLANLABS-2020M1088008

PATIENT
  Age: 84 Year
  Sex: Male

DRUGS (2)
  1. TRAMADOL. [Suspect]
     Active Substance: TRAMADOL
     Indication: PRODUCT USED FOR UNKNOWN INDICATION
     Dosage: UNK
     Route: 065
  2. MIDAZOLAM. [Suspect]
     Active Substance: MIDAZOLAM
     Indication: PRODUCT USED FOR UNKNOWN INDICATION
     Dosage: UNK
     Route: 048

REACTIONS (20)
  - Hypotension [Unknown]
  - White blood cell count increased [Unknown]
  - Blood glucose increased [Unknown]
  - Myopathy [Unknown]
  - Pleural effusion [Unknown]
  - Pneumonia [Unknown]
  - Respiratory failure [Unknown]
  - Gastrointestinal disorder [Unknown]
  - Polyneuropathy [Unknown]
  - Hypoxia [Unknown]
  - Blood creatinine increased [Unknown]
  - Blood lactic acid increased [Unknown]
  - Anaemia [Unknown]
  - Electrolyte imbalance [Unknown]
  - Blood urea increased [Unknown]
  - Vomiting [Unknown]
  - Cardiac failure [Fatal]
  - Abdominal pain [Unknown]
  - General physical health deterioration [Unknown]
  - Tachycardia [Unknown]
